FAERS Safety Report 15325360 (Version 1)
Quarter: 2018Q4

REPORT INFORMATION
  Report Type: Spontaneous
  Country: CN (occurrence: CN)
  Receive Date: 20180828
  Receipt Date: 20180828
  Transmission Date: 20190204
  Serious: No
  Sender: FDA-Public Use
  Company Number: CN-B. BRAUN MEDICAL INC.-2054322

PATIENT
  Age: 11 Month
  Sex: Female
  Weight: 7.5 kg

DRUGS (3)
  1. VITALIPID N [Suspect]
     Active Substance: ERGOCALCIFEROL\PHYTONADIONE\TOCOPHEROL\VITAMIN A PALMITATE
     Route: 042
     Dates: start: 20171204, end: 20171204
  2. SOLUVIT N [Suspect]
     Active Substance: VITAMINS
     Route: 030
     Dates: start: 20171204, end: 20171204
  3. NUTRILIPID I.V. FAT EMULSION [Suspect]
     Active Substance: SOYBEAN OIL
     Indication: NUTRITIONAL SUPPLEMENTATION
     Route: 042
     Dates: start: 20171204, end: 20171204

REACTIONS (1)
  - Rash [Recovering/Resolving]

NARRATIVE: CASE EVENT DATE: 20171204
